FAERS Safety Report 9300426 (Version 1)
Quarter: 2013Q2

REPORT INFORMATION
  Report Type: Spontaneous
  Country: JP (occurrence: JP)
  Receive Date: 20130521
  Receipt Date: 20130521
  Transmission Date: 20140414
  Serious: Yes (Hospitalization)
  Sender: FDA-Public Use
  Company Number: JP-ASTELLAS-2013JP003499

PATIENT
  Age: 10 Year
  Sex: Male
  Weight: 22 kg

DRUGS (21)
  1. PROGRAF [Suspect]
     Indication: COLITIS ULCERATIVE
     Dosage: 0.5 MG, BID
     Route: 048
     Dates: start: 20120214, end: 20120221
  2. PROGRAF [Suspect]
     Dosage: 1 MG, BID
     Route: 048
     Dates: start: 20120222, end: 20120223
  3. PROGRAF [Suspect]
     Dosage: 1.1 MG, BID
     Route: 048
     Dates: start: 20120224, end: 20120229
  4. PROGRAF [Suspect]
     Dosage: 0.8 MG, BID
     Route: 048
     Dates: start: 20120301, end: 20120627
  5. PROGRAF [Suspect]
     Dosage: 0.6 MG, BID
     Route: 048
     Dates: start: 20120628, end: 20120705
  6. PROGRAF [Suspect]
     Dosage: 1 MG, BID
     Route: 048
     Dates: start: 20120706, end: 20120719
  7. PROGRAF [Suspect]
     Dosage: 1.5 MG, BID
     Route: 048
     Dates: start: 20120720, end: 20120827
  8. PROGRAF [Suspect]
     Dosage: 1.9 MG, BID
     Route: 048
     Dates: start: 20120828, end: 20120830
  9. PROGRAF [Suspect]
     Dosage: 2.1 MG, BID
     Route: 048
     Dates: start: 20120831, end: 20120913
  10. PROGRAF [Suspect]
     Dosage: 2.3 MG, BID
     Route: 048
     Dates: start: 20120914, end: 20120919
  11. PROGRAF [Suspect]
     Dosage: 2 MG, BID
     Route: 048
     Dates: start: 20120920, end: 20120924
  12. PROGRAF [Suspect]
     Dosage: 1.7 MG, BID
     Route: 048
     Dates: start: 20120925, end: 20120927
  13. PROGRAF [Suspect]
     Dosage: 1.4 MG, BID
     Route: 048
     Dates: start: 20120928, end: 20121008
  14. PROGRAF [Suspect]
     Dosage: 1 MG, BID
     Route: 048
     Dates: start: 20121009, end: 20121015
  15. PROGRAF [Suspect]
     Dosage: 0.5 MG, BID
     Route: 048
     Dates: start: 20121016, end: 20121029
  16. AZANIN [Suspect]
     Indication: COLITIS ULCERATIVE
     Dosage: 15 MG, BID
     Route: 048
     Dates: start: 20120123, end: 20121009
  17. BREDININ [Suspect]
     Indication: COLITIS ULCERATIVE
     Dosage: 125 MG, UID/QD
     Route: 048
     Dates: start: 20120317
  18. CORTICOSTEROID NOS [Concomitant]
     Indication: COLITIS ULCERATIVE
     Route: 065
  19. CICLOSPORIN [Concomitant]
     Indication: COLITIS ULCERATIVE
     Route: 065
  20. ANTIBIOTICS [Concomitant]
     Indication: COLITIS ULCERATIVE
     Route: 065
  21. 5 ASA [Concomitant]
     Indication: COLITIS ULCERATIVE
     Route: 054

REACTIONS (4)
  - Off label use [Unknown]
  - Duodenal ulcer [Recovering/Resolving]
  - Gastric mucosal lesion [Recovering/Resolving]
  - Cytomegalovirus test positive [Recovered/Resolved]
